FAERS Safety Report 15252375 (Version 3)
Quarter: 2019Q1

REPORT INFORMATION
  Report Type: Report from Study
  Country: US (occurrence: US)
  Receive Date: 20180807
  Receipt Date: 20190320
  Transmission Date: 20190417
  Serious: No
  Sender: FDA-Public Use
  Company Number: PHEH2018US032353

PATIENT
  Sex: Female

DRUGS (1)
  1. GILENYA [Suspect]
     Active Substance: FINGOLIMOD HYDROCHLORIDE
     Indication: MULTIPLE SCLEROSIS
     Dosage: 0.5 MG, QD
     Route: 048
     Dates: start: 20180614

REACTIONS (6)
  - Fatigue [Unknown]
  - Central nervous system lesion [Unknown]
  - Mood altered [Unknown]
  - Memory impairment [Unknown]
  - Hypoaesthesia [Recovering/Resolving]
  - Crying [Unknown]
